FAERS Safety Report 11662401 (Version 2)
Quarter: 2015Q4

REPORT INFORMATION
  Report Type: Spontaneous
  Country: JP (occurrence: JP)
  Receive Date: 20151027
  Receipt Date: 20151030
  Transmission Date: 20160304
  Serious: Yes (Other)
  Sender: FDA-Public Use
  Company Number: JP-ASTRAZENECA-2015SE96202

PATIENT
  Age: 4807 Day
  Sex: Female
  Weight: 49 kg

DRUGS (5)
  1. SINGULAIR [Concomitant]
     Active Substance: MONTELUKAST SODIUM
     Indication: ASTHMA
     Route: 048
     Dates: start: 20150902
  2. MUCODYNE [Concomitant]
     Active Substance: CARBOCYSTEINE
     Indication: ASTHMA
     Route: 048
     Dates: start: 20150902
  3. CLARITH [Concomitant]
     Active Substance: CLARITHROMYCIN
     Indication: ASTHMA
     Route: 048
     Dates: start: 20150902
  4. SYMBICORT [Suspect]
     Active Substance: BUDESONIDE\FORMOTEROL FUMARATE DIHYDRATE
     Indication: ASTHMA
     Dosage: 2 INHALATIONS TWICE DAILY
     Route: 055
     Dates: start: 20150907, end: 20150915
  5. SYMBICORT [Suspect]
     Active Substance: BUDESONIDE\FORMOTEROL FUMARATE DIHYDRATE
     Indication: ASTHMA
     Dosage: AS-REQUIRED DOSE AT NIGHT
     Route: 055
     Dates: start: 20150907, end: 20150915

REACTIONS (6)
  - Hypoaesthesia [Recovered/Resolved]
  - Oropharyngeal pain [Recovering/Resolving]
  - Off label use [Unknown]
  - Nasal congestion [Recovering/Resolving]
  - Muscular weakness [Recovered/Resolved]
  - Hypokalaemia [Recovered/Resolved]

NARRATIVE: CASE EVENT DATE: 20150912
